FAERS Safety Report 18273366 (Version 1)
Quarter: 2020Q3

REPORT INFORMATION
  Report Type: Spontaneous
  Country: US (occurrence: US)
  Receive Date: 20200916
  Receipt Date: 20200916
  Transmission Date: 20201103
  Serious: No
  Sender: FDA-Public Use
  Company Number: US-THERAPEUTICSMD-2020TMD03350

PATIENT
  Sex: Female

DRUGS (1)
  1. IMVEXXY [Suspect]
     Active Substance: ESTRADIOL
     Dosage: UNK, 1X/DAY
     Dates: start: 202007

REACTIONS (4)
  - Vaginal discharge [Unknown]
  - Product residue present [Unknown]
  - Product dose omission issue [Recovered/Resolved]
  - Vaginal haemorrhage [Unknown]

NARRATIVE: CASE EVENT DATE: 2020
